FAERS Safety Report 24276077 (Version 4)
Quarter: 2024Q3

REPORT INFORMATION
  Report Type: Report from Study
  Country: US (occurrence: US)
  Receive Date: 20240903
  Receipt Date: 20240911
  Transmission Date: 20241017
  Serious: No
  Sender: ALEXION PHARMACEUTICALS
  Company Number: US-AstraZeneca-CH-00692411A

PATIENT
  Sex: Female

DRUGS (1)
  1. STRENSIQ [Suspect]
     Active Substance: ASFOTASE ALFA
     Indication: Hypophosphatasia
     Dosage: UNK
     Route: 065

REACTIONS (12)
  - Body temperature increased [Unknown]
  - Heart rate increased [Unknown]
  - Palpitations [Unknown]
  - Irritability [Unknown]
  - Pain [Unknown]
  - Back pain [Unknown]
  - Headache [Unknown]
  - Agitation [Unknown]
  - Anxiety [Unknown]
  - Blood pressure increased [Unknown]
  - Injection site reaction [Unknown]
  - Drug hypersensitivity [Unknown]
